FAERS Safety Report 4565311-8 (Version None)
Quarter: 2005Q1

REPORT INFORMATION
  Report Type: 
  Country: None (occurrence: None)
  Receive Date: 20050131
  Receipt Date: 20041215
  Transmission Date: 20050727
  Serious: Yes (Life-Threatening, Hospitalization)
  Sender: FDA-Public Use
  Company Number: US-BRISTOL-MYERS SQUIBB COMPANY-12797627

PATIENT
  Age: 81 Year
  Sex: Female
  Weight: 65 kg

DRUGS (7)
  1. ERBITUX [Suspect]
     Indication: COLON CANCER METASTATIC
     Route: 042
     Dates: start: 20041109
  2. ATENOLOL [Concomitant]
  3. DIGOXIN [Concomitant]
  4. FLUOROURACIL [Concomitant]
  5. GABAPENTIN [Concomitant]
     Indication: NEUROPATHIC PAIN
  6. MEGACE [Concomitant]
  7. WARFARIN [Concomitant]

REACTIONS (2)
  - GRAND MAL CONVULSION [None]
  - INFUSION RELATED REACTION [None]
